FAERS Safety Report 9455516 (Version 3)
Quarter: 2013Q3

REPORT INFORMATION
  Report Type: Spontaneous
  Country: FR (occurrence: FR)
  Receive Date: 20130813
  Receipt Date: 20130919
  Transmission Date: 20140515
  Serious: Yes (Death, Other)
  Sender: FDA-Public Use
  Company Number: FR-ASTRAZENECA-2013SE61503

PATIENT
  Age: 1041 Month
  Sex: Female

DRUGS (10)
  1. ATACAND [Suspect]
     Route: 048
  2. XARELTO [Suspect]
     Route: 048
     Dates: start: 20130717, end: 20130724
  3. CIPROFLOXACINE ARROW [Suspect]
     Indication: URINARY TRACT INFECTION
     Route: 048
     Dates: start: 20130714, end: 20130724
  4. PRAVASTATINE ARROW [Suspect]
     Route: 048
  5. IMOVANE [Suspect]
     Route: 048
  6. ALPRAZOLAM [Suspect]
     Route: 048
  7. CARDENSIEL [Suspect]
     Route: 048
     Dates: start: 20130717
  8. LASILIX RETARD [Suspect]
     Route: 048
     Dates: end: 20130724
  9. AMIODARONE ARROW [Suspect]
     Route: 048
     Dates: start: 20130714
  10. FRAGMINE [Suspect]
     Route: 058
     Dates: start: 20130714, end: 20130717

REACTIONS (4)
  - Pulmonary embolism [Fatal]
  - Glomerular filtration rate decreased [Not Recovered/Not Resolved]
  - Thrombocytopenia [Unknown]
  - Blood creatinine increased [Not Recovered/Not Resolved]
